FAERS Safety Report 7908305-4 (Version None)
Quarter: 2011Q4

REPORT INFORMATION
  Report Type: 
  Country: None (occurrence: None)
  Receive Date: 20111111
  Receipt Date: 20111102
  Transmission Date: 20120403
  Serious: No
  Sender: FDA-Public Use
  Company Number: US-BIOGENIDEC-2011BI042002

PATIENT
  Age: 60 Year
  Sex: Female

DRUGS (2)
  1. AVONEX [Suspect]
     Route: 030
  2. AVONEX [Suspect]
     Indication: MULTIPLE SCLEROSIS
     Route: 030
     Dates: start: 20020917

REACTIONS (7)
  - FEELING HOT [None]
  - MEMORY IMPAIRMENT [None]
  - HEADACHE [None]
  - FATIGUE [None]
  - PAIN [None]
  - PHOTOPHOBIA [None]
  - DEPRESSION [None]
